FAERS Safety Report 24298514 (Version 1)
Quarter: 2024Q3

REPORT INFORMATION
  Report Type: Spontaneous
  Country: US (occurrence: None)
  Receive Date: 20240906
  Receipt Date: 20240906
  Transmission Date: 20241017
  Serious: No
  Sender: Public
  Company Number: None

PATIENT
  Age: 67 Year
  Sex: Female
  Weight: 64.41 kg

DRUGS (1)
  1. TALTZ [Suspect]
     Active Substance: IXEKIZUMAB
     Indication: Psoriasis
     Dosage: INJECT 160MG (2 PEN2)  SUBCUTANEOUSLY AT WEEK 0 THEN 80MG (1 PEN) AT WEEK  2 AS  DIRECTED.
     Route: 058
     Dates: start: 202306

REACTIONS (1)
  - Nasopharyngitis [None]
